FAERS Safety Report 13597655 (Version 1)
Quarter: 2017Q2

REPORT INFORMATION
  Report Type: Spontaneous
  Country: US (occurrence: US)
  Receive Date: 20170531
  Receipt Date: 20170531
  Transmission Date: 20170830
  Serious: Yes (Other)
  Sender: FDA-Public Use
  Company Number: None

PATIENT
  Age: 26 Year
  Sex: Female
  Weight: 138.8 kg

DRUGS (12)
  1. NEXPLANON [Suspect]
     Active Substance: ETONOGESTREL
     Indication: CONTRACEPTION
     Dosage: DOSE - 1 IMPLANT?FREQUENCY - 3 YEARS?ROUTE - GIVEN INTO/UNDER THE SKIN
     Route: 058
     Dates: start: 20160314, end: 20170502
  2. METFORMIN [Concomitant]
     Active Substance: METFORMIN HYDROCHLORIDE
  3. NORETHINDRONE. [Concomitant]
     Active Substance: NORETHINDRONE
  4. LAMICTAL [Concomitant]
     Active Substance: LAMOTRIGINE
  5. CYMBALTA [Concomitant]
     Active Substance: DULOXETINE HYDROCHLORIDE
  6. SINGULAIR [Concomitant]
     Active Substance: MONTELUKAST SODIUM
  7. HALDOL [Concomitant]
     Active Substance: HALOPERIDOL
  8. ONE-A-DAY WOMAN^S [Concomitant]
  9. NEXPLANON [Suspect]
     Active Substance: ETONOGESTREL
     Indication: MENSTRUATION IRREGULAR
     Dosage: DOSE - 1 IMPLANT?FREQUENCY - 3 YEARS?ROUTE - GIVEN INTO/UNDER THE SKIN
     Route: 058
     Dates: start: 20160314, end: 20170502
  10. CLONIDINE. [Concomitant]
     Active Substance: CLONIDINE
  11. SPIRONOLACTONE. [Concomitant]
     Active Substance: SPIRONOLACTONE
  12. LOSARTAN. [Concomitant]
     Active Substance: LOSARTAN

REACTIONS (1)
  - Menorrhagia [None]

NARRATIVE: CASE EVENT DATE: 20170119
